FAERS Safety Report 8599022 (Version 3)
Quarter: 2015Q4

REPORT INFORMATION
  Report Type: Spontaneous
  Country: US (occurrence: US)
  Receive Date: 20120605
  Receipt Date: 20151005
  Transmission Date: 20160305
  Serious: Yes (Other)
  Sender: FDA-Public Use
  Company Number: US-AMGEN-USASP2012034170

PATIENT
  Age: 76 Year
  Sex: Female

DRUGS (1)
  1. ENBREL [Suspect]
     Active Substance: ETANERCEPT
     Indication: RHEUMATOID ARTHRITIS
     Dosage: 50 MG, QWK
     Route: 065
     Dates: start: 200802

REACTIONS (3)
  - Rocky mountain spotted fever [Recovered/Resolved]
  - Lyme disease [Recovered/Resolved]
  - Arthropod bite [Recovered/Resolved]

NARRATIVE: CASE EVENT DATE: 2012
